FAERS Safety Report 6890415-4 (Version None)
Quarter: 2010Q3

REPORT INFORMATION
  Report Type: 
  Country: None (occurrence: None)
  Receive Date: 20100730
  Receipt Date: 20081022
  Transmission Date: 20110219
  Serious: Yes (Other)
  Sender: FDA-Public Use
  Company Number: US-PFIZER INC-2008089234

PATIENT
  Sex: Female

DRUGS (4)
  1. LIPITOR [Suspect]
     Indication: BLOOD CHOLESTEROL INCREASED
     Route: 048
     Dates: start: 20060101, end: 20080701
  2. WELCHOL [Suspect]
     Indication: BLOOD CHOLESTEROL INCREASED
     Route: 048
  3. NEXIUM [Concomitant]
  4. VITAMINS [Concomitant]

REACTIONS (4)
  - ANXIETY [None]
  - DYSPHAGIA [None]
  - MEMORY IMPAIRMENT [None]
  - TONGUE INJURY [None]
